FAERS Safety Report 4674939-6 (Version None)
Quarter: 2005Q2

REPORT INFORMATION
  Report Type: 
  Country: None (occurrence: None)
  Receive Date: 20050525
  Receipt Date: 20041116
  Transmission Date: 20051028
  Serious: Yes (Other)
  Sender: FDA-Public Use
  Company Number: 9318

PATIENT
  Age: 67 Year
  Sex: Female
  Weight: 72.5755 kg

DRUGS (4)
  1. CARBOPLATIN [Suspect]
     Indication: PERITONEAL CARCINOMA
     Dosage: 640 MG IV
     Route: 042
  2. FAMOTIDINE [Concomitant]
  3. DEXAMETHASONE [Concomitant]
  4. ONDANSETRON [Concomitant]

REACTIONS (5)
  - DIZZINESS [None]
  - ERYTHEMA [None]
  - HYPERHIDROSIS [None]
  - LOSS OF CONSCIOUSNESS [None]
  - SENSORY DISTURBANCE [None]
